FAERS Safety Report 21925111 (Version 2)
Quarter: 2023Q1

REPORT INFORMATION
  Report Type: Spontaneous
  Country: GB (occurrence: GB)
  Receive Date: 20230130
  Receipt Date: 20230224
  Transmission Date: 20230418
  Serious: Yes (Death, Other)
  Sender: FDA-Public Use
  Company Number: GB-MYLANLABS-2023M1004179

PATIENT
  Age: 57 Year
  Sex: Male

DRUGS (1)
  1. CLOZARIL [Suspect]
     Active Substance: CLOZAPINE
     Indication: Schizophrenia
     Dosage: UNK
     Route: 048
     Dates: start: 20010701

REACTIONS (4)
  - Death [Fatal]
  - Bladder cancer [Unknown]
  - Metastatic neoplasm [Unknown]
  - Anaemia [Unknown]

NARRATIVE: CASE EVENT DATE: 20230111
